FAERS Safety Report 4693610-8 (Version None)
Quarter: 2005Q2

REPORT INFORMATION
  Report Type: 
  Country: None (occurrence: None)
  Receive Date: 20050615
  Receipt Date: 20050526
  Transmission Date: 20051028
  Serious: Yes (Other)
  Sender: FDA-Public Use
  Company Number: USA050599121

PATIENT
  Age: 72 Year
  Sex: Female

DRUGS (2)
  1. EVISTA [Suspect]
     Dates: start: 20000801
  2. PREMPRO [Concomitant]

REACTIONS (1)
  - BREAST CANCER FEMALE [None]
